FAERS Safety Report 9052967 (Version 1)
Quarter: 2013Q1

REPORT INFORMATION
  Report Type: Spontaneous
  Country: US (occurrence: US)
  Receive Date: 20130208
  Receipt Date: 20130208
  Transmission Date: 20140127
  Serious: No
  Sender: FDA-Public Use
  Company Number: US-009507513-1302USA002588

PATIENT
  Age: 94 Year
  Sex: Female

DRUGS (1)
  1. AZASITE [Suspect]
     Indication: INFECTION
     Dosage: 1 BOTTLE OF 2.5
     Route: 047

REACTIONS (3)
  - Eye discharge [Not Recovered/Not Resolved]
  - Drug dose omission [Unknown]
  - Product quality issue [Unknown]
